FAERS Safety Report 10905285 (Version 1)
Quarter: 2015Q1

REPORT INFORMATION
  Report Type: Spontaneous
  Country: IN (occurrence: IN)
  Receive Date: 20150311
  Receipt Date: 20150311
  Transmission Date: 20150721
  Serious: Yes (Hospitalization, Other)
  Sender: FDA-Public Use
  Company Number: IN-BAUSCH-BL-2015-003907

PATIENT
  Age: 38 Year
  Sex: Female

DRUGS (2)
  1. NIFEDIPINE. [Suspect]
     Active Substance: NIFEDIPINE
     Indication: TOCOLYSIS
     Dosage: STAT AND 6 HOURLY AFTERWARDS.
     Route: 065
  2. BETAMETHASONE [Suspect]
     Active Substance: BETAMETHASONE
     Indication: FOETAL GROWTH RESTRICTION
     Route: 042

REACTIONS (5)
  - Caesarean section [None]
  - Exposure during pregnancy [Recovered/Resolved]
  - Hypotension [None]
  - Pulmonary oedema [Recovered/Resolved]
  - Tachycardia [None]
